FAERS Safety Report 17766869 (Version 1)
Quarter: 2020Q2

REPORT INFORMATION
  Report Type: Spontaneous
  Country: JP (occurrence: JP)
  Receive Date: 20200511
  Receipt Date: 20200511
  Transmission Date: 20200714
  Serious: Yes (Hospitalization)
  Sender: FDA-Public Use
  Company Number: JP-TEVA-2020-JP-1233880

PATIENT
  Age: 53 Year
  Sex: Male

DRUGS (8)
  1. GABEXATE MESYLATE [Suspect]
     Active Substance: GABEXATE MESYLATE
     Indication: PROPHYLAXIS AGAINST TRANSPLANT REJECTION
     Dosage: ADMINISTERED VIA THE PORTAL VEIN CATHETER
     Route: 065
  2. TACROLIMUS. [Suspect]
     Active Substance: TACROLIMUS
     Indication: IMMUNOSUPPRESSANT DRUG THERAPY
     Dosage: INITIAL TARGET TROUGH LEVEL, 12-15 NG/ML; DOSE OF TACROLIMUS GRADUALLY TAPERED
     Route: 065
  3. ANTITHYMOCYTE-GLOBULIN [Suspect]
     Active Substance: THYMOCYTE IMMUNE GLOBULIN NOS
     Indication: IMMUNOSUPPRESSANT DRUG THERAPY
     Route: 042
  4. MYCOPHENOLATE MOFETIL. [Suspect]
     Active Substance: MYCOPHENOLATE MOFETIL
     Indication: IMMUNOSUPPRESSANT DRUG THERAPY
     Route: 065
  5. MIZORIBINE [Suspect]
     Active Substance: MIZORIBINE
     Indication: IMMUNOSUPPRESSANT DRUG THERAPY
     Route: 065
  6. RITUXIMAB. [Suspect]
     Active Substance: RITUXIMAB
     Indication: IMMUNOSUPPRESSANT DRUG THERAPY
     Dosage: DOSE: 500 MG/BODY WEIGHT
     Route: 065
  7. GABEXATE MESYLATE [Suspect]
     Active Substance: GABEXATE MESYLATE
     Indication: IMMUNOSUPPRESSANT DRUG THERAPY
  8. PROSTAGLANDIN EI [Concomitant]
     Indication: PROPHYLAXIS AGAINST TRANSPLANT REJECTION
     Dosage: ADMINISTERED VIA THE PORTAL VEIN CATHETER
     Route: 065

REACTIONS (1)
  - Tropical spastic paresis [Recovering/Resolving]
